FAERS Safety Report 7787357-9 (Version None)
Quarter: 2011Q3

REPORT INFORMATION
  Report Type: 
  Country: None (occurrence: None)
  Receive Date: 20110929
  Receipt Date: 20110920
  Transmission Date: 20111222
  Serious: Yes (Other)
  Sender: FDA-Public Use
  Company Number: PHEH2011US03463

PATIENT
  Sex: Female
  Weight: 72.109 kg

DRUGS (3)
  1. GILENYA [Suspect]
     Indication: MULTIPLE SCLEROSIS
     Dosage: 0.5 MG, QD
     Route: 048
     Dates: start: 20110401, end: 20110830
  2. TEGRETOL [Concomitant]
     Dosage: UNK UKN, QD
     Route: 048
  3. GABAPENTIN [Concomitant]
     Dosage: UNK UKN, QD
     Route: 048

REACTIONS (1)
  - TRIGEMINAL NEURALGIA [None]
